FAERS Safety Report 20054045 (Version 1)
Quarter: 2021Q4

REPORT INFORMATION
  Report Type: Spontaneous
  Country: FR (occurrence: FR)
  Receive Date: 20211110
  Receipt Date: 20211110
  Transmission Date: 20220303
  Serious: Yes (Other)
  Sender: FDA-Public Use
  Company Number: FR-BRISTOL-MYERS SQUIBB COMPANY-BMS-2021-114830

PATIENT
  Age: 61 Year
  Sex: Female
  Weight: 47 kg

DRUGS (1)
  1. HYDREA [Suspect]
     Active Substance: HYDROXYUREA
     Indication: Essential thrombocythaemia
     Dosage: 500 MILLIGRAM
     Route: 048
     Dates: start: 20170403

REACTIONS (9)
  - Neuropathy peripheral [Recovering/Resolving]
  - Myopathy [Recovering/Resolving]
  - Hypohidrosis [Recovering/Resolving]
  - Fibromyalgia [Recovering/Resolving]
  - Bursitis [Recovering/Resolving]
  - Alopecia [Recovering/Resolving]
  - Tendonitis [Recovering/Resolving]
  - Libido decreased [Recovering/Resolving]
  - Decreased appetite [Recovering/Resolving]

NARRATIVE: CASE EVENT DATE: 20180103
